FAERS Safety Report 9116204 (Version 3)
Quarter: 2013Q1

REPORT INFORMATION
  Report Type: Report from Study
  Country: US (occurrence: US)
  Receive Date: 20130225
  Receipt Date: 20130228
  Transmission Date: 20140127
  Serious: No
  Sender: FDA-Public Use
  Company Number: US-VERTEX PHARMACEUTICALS INC.-2013-002587

PATIENT
  Sex: Male
  Weight: 90 kg

DRUGS (5)
  1. VX-770 [Suspect]
     Indication: CYSTIC FIBROSIS
     Dosage: 150 MG, BID
     Route: 048
     Dates: start: 20130220
  2. CREON [Concomitant]
     Dosage: 12000 UNT
  3. VITAMIN D3 [Concomitant]
     Dosage: 10000 UNT
  4. ALBUTEROL [Concomitant]
     Dosage: 0.083 %, UNK
  5. SODIUM CHLORIDE [Concomitant]
     Dosage: 0.45 %, UNK

REACTIONS (1)
  - Sinusitis [Unknown]
